FAERS Safety Report 10210805 (Version 1)
Quarter: 2014Q2

REPORT INFORMATION
  Report Type: Spontaneous
  Country: FR (occurrence: FR)
  Receive Date: 20140602
  Receipt Date: 20140602
  Transmission Date: 20141212
  Serious: Yes (Hospitalization)
  Sender: FDA-Public Use
  Company Number: FR-SA-2014SA066341

PATIENT
  Age: 62 Year
  Sex: Male

DRUGS (18)
  1. ISONIAZID [Suspect]
     Indication: PULMONARY TUBERCULOSIS
     Route: 048
     Dates: start: 20121125, end: 20121205
  2. ISONIAZID [Suspect]
     Indication: PULMONARY TUBERCULOSIS
     Route: 065
     Dates: start: 20130223
  3. RIFAMPICINE [Suspect]
     Indication: PULMONARY TUBERCULOSIS
     Route: 048
     Dates: start: 20121125, end: 20121205
  4. PYRAZINAMIDE [Suspect]
     Indication: PULMONARY TUBERCULOSIS
     Route: 048
     Dates: start: 20121125, end: 20121205
  5. ETHAMBUTOL [Suspect]
     Indication: PULMONARY TUBERCULOSIS
     Route: 048
     Dates: start: 20121125, end: 20121205
  6. SOTALOL [Concomitant]
  7. PREVISCAN [Concomitant]
  8. STILNOX [Concomitant]
  9. OXYCONTIN [Concomitant]
  10. OXYNORMORO [Concomitant]
  11. SOLUPRED [Concomitant]
  12. AMIKACIN [Concomitant]
     Dates: start: 20130313, end: 201304
  13. DIPROSONE [Concomitant]
  14. INEXIUM [Concomitant]
  15. RUBOZINC [Concomitant]
  16. PROFENID [Concomitant]
  17. ACUPAN [Concomitant]
  18. REMICADE [Concomitant]
     Dates: start: 201207

REACTIONS (2)
  - Hepatocellular injury [Recovered/Resolved]
  - Cholestasis [Recovered/Resolved]
